FAERS Safety Report 18564433 (Version 1)
Quarter: 2020Q4

REPORT INFORMATION
  Report Type: Spontaneous
  Country: ES (occurrence: ES)
  Receive Date: 20201201
  Receipt Date: 20201201
  Transmission Date: 20210114
  Serious: Yes (Other)
  Sender: FDA-Public Use
  Company Number: NVSC2020ES240465

PATIENT
  Age: 13 Year
  Sex: Female

DRUGS (8)
  1. IFOSFAMIDE. [Suspect]
     Active Substance: IFOSFAMIDE
     Indication: BONE SARCOMA
  2. CAELYX [Suspect]
     Active Substance: DOXORUBICIN HYDROCHLORIDE
     Indication: OSTEOSARCOMA
  3. METHOTREXATE. [Suspect]
     Active Substance: METHOTREXATE
     Indication: OSTEOSARCOMA
     Dosage: UNK
     Route: 065
  4. METHOTREXATE. [Suspect]
     Active Substance: METHOTREXATE
     Indication: BONE SARCOMA
  5. CISPLATIN. [Suspect]
     Active Substance: CISPLATIN
     Indication: BONE SARCOMA
  6. CAELYX [Suspect]
     Active Substance: DOXORUBICIN HYDROCHLORIDE
     Indication: BONE SARCOMA
     Dosage: UNK
     Route: 065
  7. CISPLATIN. [Suspect]
     Active Substance: CISPLATIN
     Indication: OSTEOSARCOMA
     Dosage: UNK
     Route: 065
  8. IFOSFAMIDE. [Suspect]
     Active Substance: IFOSFAMIDE
     Indication: OSTEOSARCOMA
     Dosage: UNK
     Route: 065

REACTIONS (7)
  - Swelling [Unknown]
  - Product use in unapproved indication [Unknown]
  - Blood lactate dehydrogenase increased [Unknown]
  - Blood alkaline phosphatase increased [Unknown]
  - Off label use [Unknown]
  - Osteosarcoma [Unknown]
  - Malignant neoplasm progression [Unknown]
